FAERS Safety Report 21672003 (Version 2)
Quarter: 2022Q4

REPORT INFORMATION
  Report Type: Other
  Country: JP (occurrence: JP)
  Receive Date: 20221202
  Receipt Date: 20221207
  Transmission Date: 20230112
  Serious: Yes (Other)
  Sender: FDA-Public Use
  Company Number: JP-CHUGAI-2021009077

PATIENT
  Age: 72 Year
  Sex: Male
  Weight: 55.1 kg

DRUGS (2)
  1. ENTRECTINIB [Suspect]
     Active Substance: ENTRECTINIB
     Indication: Non-small cell lung cancer
     Route: 048
     Dates: start: 20210629
  2. ENTRECTINIB [Suspect]
     Active Substance: ENTRECTINIB
     Route: 048

REACTIONS (7)
  - Renal impairment [Recovering/Resolving]
  - Nausea [Not Recovered/Not Resolved]
  - Limb discomfort [Recovering/Resolving]
  - Defaecation disorder [Unknown]
  - Dizziness [Unknown]
  - Taste disorder [Unknown]
  - Hypoaesthesia oral [Not Recovered/Not Resolved]

NARRATIVE: CASE EVENT DATE: 20210702
